FAERS Safety Report 5484624-9 (Version None)
Quarter: 2007Q4

REPORT INFORMATION
  Report Type: 
  Country: None (occurrence: None)
  Receive Date: 20071012
  Receipt Date: 20071002
  Transmission Date: 20080405
  Serious: Yes (Other)
  Sender: FDA-Public Use
  Company Number: US-PFIZER INC-2007082475

PATIENT
  Sex: Male

DRUGS (2)
  1. LYRICA [Suspect]
     Indication: RADICULITIS
     Dates: start: 20070101, end: 20070101
  2. NEURONTIN [Suspect]

REACTIONS (4)
  - DRUG INEFFECTIVE [None]
  - HEADACHE [None]
  - TRANSIENT ISCHAEMIC ATTACK [None]
  - VISION BLURRED [None]
